FAERS Safety Report 7277888-2 (Version None)
Quarter: 2011Q1

REPORT INFORMATION
  Report Type: 
  Country: None (occurrence: None)
  Receive Date: 20110207
  Receipt Date: 20110201
  Transmission Date: 20110831
  Serious: Yes (Death)
  Sender: FDA-Public Use
  Company Number: NO-ROCHE-709295

PATIENT
  Sex: Female
  Weight: 67 kg

DRUGS (12)
  1. ONDANSETRON [Concomitant]
     Dosage: DAY: 1- 3 CYCLE
     Dates: start: 20100316, end: 20100523
  2. CYCLOPHOSPHAMIDE [Suspect]
     Indication: BREAST CANCER
     Dosage: FREQUENCY DAY1 /21. LAST DOSE PRIOR TO SAE ON 20 MAY 2010.
     Route: 042
     Dates: start: 20100316
  3. EPIRUBICIN [Suspect]
     Indication: BREAST CANCER
     Dosage: FREQUENCY: EVERY 3 WEEKS. LAST DOSE PRIOR TO SAE 20 MAY 2010.
     Route: 042
     Dates: start: 20100316
  4. APREPITANT [Concomitant]
     Dates: start: 20100520, end: 20100520
  5. VIVAL [Concomitant]
     Dosage: TOTAL DAILY DOSE: 5 MG PRN.
     Dates: start: 20100428, end: 20100523
  6. APREPITANT [Concomitant]
     Dates: start: 20100521, end: 20100522
  7. CIPRALEX [Concomitant]
     Dates: start: 20000615, end: 20100523
  8. METOCLOPRAMIDE [Concomitant]
     Dosage: TOTAL DAILY DOSE: PRN.
     Dates: start: 20100316, end: 20100523
  9. BEVACIZUMAB [Suspect]
     Indication: BREAST CANCER
     Dosage: LAST DOSE PRIOR TO SAE ON 20 MAY 2010. FREQUENCY EVERY 3 WEEKS. DOSE FORM REPORTED AS MG/KG
     Route: 042
     Dates: start: 20100316
  10. MEDROL [Concomitant]
     Dosage: DAY: 1- 3 CYCLE
     Dates: start: 20100316, end: 20100523
  11. FLUOROURACIL [Suspect]
     Indication: BREAST CANCER
     Dosage: FREQUENCY: EVERY 3 WEEKS. LAST DOSE PRIOR TO SAE WAS 20 MAY 2010.
     Route: 042
     Dates: start: 20100316
  12. SOMAC [Concomitant]
     Dates: start: 20100520, end: 20100523

REACTIONS (1)
  - DEATH [None]
